FAERS Safety Report 24132763 (Version 3)
Quarter: 2024Q3

REPORT INFORMATION
  Report Type: Spontaneous
  Country: US (occurrence: US)
  Receive Date: 20240724
  Receipt Date: 20240925
  Transmission Date: 20241017
  Serious: No
  Sender: SANOFI AVENTIS
  Company Number: US-SA-SAC20240717000374

PATIENT
  Age: 24 Year
  Sex: Male

DRUGS (9)
  1. TZIELD [Suspect]
     Active Substance: TEPLIZUMAB-MZWV
     Indication: Type 1 diabetes mellitus
     Dosage: 141 UG, 1X
     Route: 041
     Dates: start: 20240713, end: 20240713
  2. TZIELD [Suspect]
     Active Substance: TEPLIZUMAB-MZWV
     Dosage: 271.3 UG, 1X
     Route: 041
     Dates: start: 20240714, end: 20240714
  3. TZIELD [Suspect]
     Active Substance: TEPLIZUMAB-MZWV
     Dosage: 542.5 UG, 1X
     Route: 041
     Dates: start: 20240716, end: 20240716
  4. TZIELD [Suspect]
     Active Substance: TEPLIZUMAB-MZWV
     Dosage: 1085 UG, 1X
     Route: 041
     Dates: start: 20240717, end: 20240717
  5. TZIELD [Suspect]
     Active Substance: TEPLIZUMAB-MZWV
     Dosage: 2235.1 UG, 1X
     Route: 041
     Dates: start: 20240718, end: 20240718
  6. TZIELD [Suspect]
     Active Substance: TEPLIZUMAB-MZWV
     Dosage: 2235.1 UG, 1X
     Route: 041
     Dates: start: 20240720, end: 20240720
  7. IBUPROFEN [Concomitant]
     Active Substance: IBUPROFEN
     Indication: Antipyresis
     Dosage: UNK
     Dates: start: 20240713
  8. BENADRYL [Concomitant]
     Active Substance: DIPHENHYDRAMINE HYDROCHLORIDE
     Indication: Antiallergic therapy
     Dosage: UNK
     Dates: start: 20240713
  9. ZOFRAN [Concomitant]
     Active Substance: ONDANSETRON HYDROCHLORIDE
     Indication: Antiemetic supportive care
     Dosage: UNK
     Dates: start: 20240713

REACTIONS (10)
  - Abdominal pain upper [Unknown]
  - Infusion site erythema [Unknown]
  - Infusion site rash [Unknown]
  - Hypertension [Unknown]
  - Infusion site pruritus [Unknown]
  - Vomiting [Recovering/Resolving]
  - Peripheral swelling [Recovering/Resolving]
  - Nausea [Recovering/Resolving]
  - Urticaria [Recovering/Resolving]
  - Headache [Unknown]

NARRATIVE: CASE EVENT DATE: 20240701
